FAERS Safety Report 5198475-6 (Version None)
Quarter: 2007Q1

REPORT INFORMATION
  Report Type: 
  Country: None (occurrence: None)
  Receive Date: 20070104
  Receipt Date: 20061221
  Transmission Date: 20070707
  Serious: Yes (Other)
  Sender: FDA-Public Use
  Company Number: CA-ELI_LILLY_AND_COMPANY-CA200610004869

PATIENT
  Age: 61 Year
  Sex: Female

DRUGS (2)
  1. CILAZAPRIL [Concomitant]
  2. EVISTA [Suspect]
     Indication: OSTEOPOROSIS
     Dosage: 60 MG, UNK
     Route: 048
     Dates: start: 20040401

REACTIONS (1)
  - BREAST CANCER STAGE III [None]
